FAERS Safety Report 5852105-6 (Version None)
Quarter: 2008Q3

REPORT INFORMATION
  Report Type: 
  Country: None (occurrence: None)
  Receive Date: 20080821
  Receipt Date: 20080811
  Transmission Date: 20090109
  Serious: Yes (Hospitalization)
  Sender: FDA-Public Use
  Company Number: US-JNJFOC-20080802773

PATIENT
  Sex: Female
  Weight: 58.97 kg

DRUGS (4)
  1. DURAGESIC-100 [Suspect]
     Indication: PAIN
     Route: 062
  2. TENORMIN [Concomitant]
     Indication: HYPERTENSION
     Route: 048
  3. CLONIDINE [Concomitant]
     Indication: HYPERTENSION
     Route: 048
  4. THORAZINE [Concomitant]
     Route: 048

REACTIONS (3)
  - BACK PAIN [None]
  - BONE DISORDER [None]
  - INTERVERTEBRAL DISC COMPRESSION [None]
